FAERS Safety Report 8575480-0 (Version None)
Quarter: 2012Q3

REPORT INFORMATION
  Report Type: 
  Country: None (occurrence: None)
  Receive Date: 20120807
  Receipt Date: 20120802
  Transmission Date: 20120928
  Serious: Yes (Hospitalization, Other)
  Sender: FDA-Public Use
  Company Number: PHEH2011US00507

PATIENT
  Sex: Female

DRUGS (9)
  1. ATIVAN [Concomitant]
     Dosage: 1 MG, Q6H
     Route: 048
  2. AUGMENTIN '500' [Concomitant]
  3. REVLIMID [Concomitant]
  4. METRONIDAZOLE [Concomitant]
  5. FLUCONAZOLE [Concomitant]
  6. CHLORHEXIDINE GLUCONATE [Concomitant]
     Dosage: 1 CAPFUL TWICE DAILY FOR 1 MINUTE
  7. ACYCLOVIR [Concomitant]
  8. ZOMETA [Suspect]
     Dosage: 4 MG, QMO
     Route: 042
     Dates: end: 20090701
  9. CYCLOPHOSPHAMIDE [Concomitant]

REACTIONS (52)
  - ARTERIOSCLEROSIS [None]
  - TRICUSPID VALVE INCOMPETENCE [None]
  - TOOTH ABSCESS [None]
  - GASTROOESOPHAGEAL REFLUX DISEASE [None]
  - VENTRICULAR TACHYCARDIA [None]
  - AORTIC CALCIFICATION [None]
  - ENTEROCOLITIS INFECTIOUS [None]
  - HYPONATRAEMIA [None]
  - BONE PAIN [None]
  - THROMBOCYTOPENIA [None]
  - ANXIETY [None]
  - CONSTIPATION [None]
  - URINARY INCONTINENCE [None]
  - HIATUS HERNIA [None]
  - VOMITING [None]
  - GINGIVAL INFECTION [None]
  - CHOLECYSTITIS [None]
  - HYPERLIPIDAEMIA [None]
  - HYPERKERATOSIS [None]
  - SPINAL OSTEOARTHRITIS [None]
  - CHOLELITHIASIS [None]
  - EMOTIONAL DISTRESS [None]
  - PROCTALGIA [None]
  - INTERVERTEBRAL DISC SPACE NARROWING [None]
  - HAEMORRHOIDS [None]
  - MITRAL VALVE INCOMPETENCE [None]
  - SYNCOPE [None]
  - RENAL FAILURE ACUTE [None]
  - LEUKAEMIA [None]
  - INJURY [None]
  - SCOLIOSIS [None]
  - DIASTOLIC DYSFUNCTION [None]
  - GASTRITIS [None]
  - GINGIVAL BLEEDING [None]
  - HYPOKALAEMIA [None]
  - OSTEONECROSIS OF JAW [None]
  - PAIN [None]
  - URINARY TRACT INFECTION [None]
  - PULMONARY CONGESTION [None]
  - GINGIVAL SWELLING [None]
  - DIARRHOEA [None]
  - BONE MARROW TRANSPLANT [None]
  - CYSTOPEXY [None]
  - MYELODYSPLASTIC SYNDROME [None]
  - INFECTION [None]
  - DEFORMITY [None]
  - UNEVALUABLE EVENT [None]
  - HAEMATOCHEZIA [None]
  - ABDOMINAL PAIN [None]
  - NAUSEA [None]
  - DIZZINESS [None]
  - UTERINE LEIOMYOMA [None]
